FAERS Safety Report 25348586 (Version 1)
Quarter: 2025Q2

REPORT INFORMATION
  Report Type: Spontaneous
  Country: GB (occurrence: GB)
  Receive Date: 20250522
  Receipt Date: 20250522
  Transmission Date: 20250717
  Serious: Yes (Other)
  Sender: BAUSCH AND LOMB
  Company Number: GB-BAUSCH-BL-2025-006504

PATIENT
  Sex: Female

DRUGS (8)
  1. HYDROCORTISONE [Suspect]
     Active Substance: HYDROCORTISONE
     Indication: Product used for unknown indication
     Route: 064
  2. HYDROCORTISONE [Suspect]
     Active Substance: HYDROCORTISONE
     Route: 064
  3. LEVOTHYROXINE [Suspect]
     Active Substance: LEVOTHYROXINE
     Indication: Product used for unknown indication
     Route: 064
  4. HYDROXOCOBALAMIN [Suspect]
     Active Substance: HYDROXOCOBALAMIN
     Indication: Product used for unknown indication
     Route: 064
  5. DIETHYLSTILBESTROL [Suspect]
     Active Substance: DIETHYLSTILBESTROL
     Indication: Product used for unknown indication
     Route: 064
  6. ENOXAPARIN [Suspect]
     Active Substance: ENOXAPARIN
     Indication: Product used for unknown indication
     Route: 064
  7. PROGESTERONE [Suspect]
     Active Substance: PROGESTERONE
     Indication: Product used for unknown indication
     Route: 064
  8. ASPIRIN [Suspect]
     Active Substance: ASPIRIN
     Indication: Product used for unknown indication
     Route: 064

REACTIONS (2)
  - Foetal growth restriction [Unknown]
  - Foetal exposure during pregnancy [Unknown]
